FAERS Safety Report 25162914 (Version 2)
Quarter: 2025Q2

REPORT INFORMATION
  Report Type: Report from Study
  Country: US (occurrence: US)
  Receive Date: 20250404
  Receipt Date: 20250407
  Transmission Date: 20250717
  Serious: Yes (Hospitalization, Other)
  Sender: MERCK SHARP AND DOHME
  Company Number: US-009507513-2269376

PATIENT
  Age: 69 Year
  Sex: Male
  Weight: 66.678 kg

DRUGS (20)
  1. WINREVAIR [Suspect]
     Active Substance: SOTATERCEPT-CSRK
     Indication: Pulmonary arterial hypertension
     Dosage: INJECT 0.4 ML DOSE SUBCUTANEOUSLY, STRENGTH 45 MG
     Route: 058
     Dates: start: 202503
  2. WINREVAIR [Suspect]
     Active Substance: SOTATERCEPT-CSRK
  3. WINREVAIR [Suspect]
     Active Substance: SOTATERCEPT-CSRK
  4. WINREVAIR [Suspect]
     Active Substance: SOTATERCEPT-CSRK
  5. ALBUTEROL SULFATE [Concomitant]
     Active Substance: ALBUTEROL SULFATE
  6. TAMSULOSIN HYDROCHLORIDE [Concomitant]
     Active Substance: TAMSULOSIN HYDROCHLORIDE
  7. SODIUM CHLORIDE [Concomitant]
     Active Substance: SODIUM CHLORIDE
  8. TRELEGY ELLIPTA [Concomitant]
     Active Substance: FLUTICASONE FUROATE\UMECLIDINIUM BROMIDE\VILANTEROL TRIFENATATE
  9. KETAMINE HYDROCHLORIDE [Concomitant]
     Active Substance: KETAMINE HYDROCHLORIDE
  10. LECITHIN [Concomitant]
     Active Substance: LECITHIN
  11. CLONIDINE usp [Concomitant]
  12. KETOPROFEN USP [Concomitant]
  13. ASPIRIN [Concomitant]
     Active Substance: ASPIRIN
  14. OXYGEN [Concomitant]
     Active Substance: OXYGEN
  15. LIDOCAINE HYDROCHLORIDE [Concomitant]
     Active Substance: LIDOCAINE HYDROCHLORIDE
  16. AMITRIPTYLINE [Concomitant]
     Active Substance: AMITRIPTYLINE
  17. GABAPENTIN [Concomitant]
     Active Substance: GABAPENTIN
  18. POLOXAMER GEL [Concomitant]
  19. POTASSIUM CHLORIDE [Concomitant]
     Active Substance: POTASSIUM CHLORIDE
  20. REMODULIN [Concomitant]
     Active Substance: TREPROSTINIL

REACTIONS (6)
  - Thrombosis [Unknown]
  - Hospitalisation [Unknown]
  - Implant site swelling [Unknown]
  - Oedema peripheral [Unknown]
  - Injection site pain [Unknown]
  - Pneumonia [Unknown]

NARRATIVE: CASE EVENT DATE: 20250301
